FAERS Safety Report 5546039-4 (Version None)
Quarter: 2007Q4

REPORT INFORMATION
  Report Type: 
  Country: None (occurrence: None)
  Receive Date: 20071211
  Receipt Date: 20070828
  Transmission Date: 20080405
  Serious: No
  Sender: FDA-Public Use
  Company Number: US-BRISTOL-MYERS SQUIBB COMPANY-13891049

PATIENT
  Age: 50 Year
  Sex: Female
  Weight: 70 kg

DRUGS (5)
  1. EMSAM [Suspect]
     Indication: MAJOR DEPRESSION
     Route: 062
     Dates: start: 20070822
  2. BUSPAR [Concomitant]
  3. AMBIEN [Concomitant]
     Route: 048
  4. IBUPROFEN [Concomitant]
  5. MENTHOLATUM [Concomitant]
     Route: 061

REACTIONS (6)
  - AFFECT LABILITY [None]
  - AGGRESSION [None]
  - ANGER [None]
  - BACK PAIN [None]
  - HEADACHE [None]
  - SUICIDAL IDEATION [None]
